FAERS Safety Report 10367667 (Version 1)
Quarter: 2014Q3

REPORT INFORMATION
  Report Type: Spontaneous
  Country: DK (occurrence: None)
  Receive Date: 20140805
  Receipt Date: 20140805
  Transmission Date: 20150326
  Serious: Yes (Other)
  Sender: FDA-Public Use
  Company Number: 2014MPI00827

PATIENT
  Age: 32 Year
  Sex: Female

DRUGS (1)
  1. ADCETRIS [Suspect]
     Active Substance: BRENTUXIMAB VEDOTIN
     Indication: HODGKIN^S DISEASE

REACTIONS (6)
  - Peroneal nerve palsy [None]
  - Vocal cord paralysis [None]
  - Anxiety [None]
  - Neuropathy peripheral [None]
  - Fall [None]
  - Wrist fracture [None]
